FAERS Safety Report 20984843 (Version 1)
Quarter: 2022Q2

REPORT INFORMATION
  Report Type: Spontaneous
  Country: US (occurrence: None)
  Receive Date: 20220621
  Receipt Date: 20220621
  Transmission Date: 20220720
  Serious: No
  Sender: FDA-Public Use
  Company Number: US-ROCHE-2927246

PATIENT
  Sex: Male

DRUGS (1)
  1. XELODA [Suspect]
     Active Substance: CAPECITABINE
     Indication: Colon cancer
     Dosage: 1800MG TWICE DAILY, CYCLES 3 WEEKS ON, 1 WEEK OFF ;ONGOING: YES
     Route: 048
     Dates: start: 20210825

REACTIONS (2)
  - Product use complaint [Unknown]
  - No adverse event [Unknown]
